FAERS Safety Report 4758176-2 (Version None)
Quarter: 2005Q3

REPORT INFORMATION
  Report Type: 
  Country: None (occurrence: None)
  Receive Date: 20050831
  Receipt Date: 20050527
  Transmission Date: 20060218
  Serious: Yes (Hospitalization)
  Sender: FDA-Public Use
  Company Number: US-MERCK-0506USA00397

PATIENT
  Age: 71 Year
  Sex: Male
  Weight: 103 kg

DRUGS (11)
  1. VIOXX [Suspect]
     Indication: POLYARTHRITIS
     Route: 048
     Dates: start: 20000501
  2. VIOXX [Suspect]
     Route: 048
     Dates: end: 20031001
  3. PRINIVIL [Concomitant]
     Indication: HYPERTENSION
     Route: 048
     Dates: start: 19990201, end: 20000901
  4. LISINOPRIL [Concomitant]
     Indication: HYPERTENSION
     Route: 065
     Dates: start: 20000901
  5. NORVASC [Concomitant]
     Route: 065
     Dates: start: 19970805
  6. HYDRODIURIL [Concomitant]
     Indication: POLYURIA
     Route: 048
     Dates: start: 19970101
  7. NAPROSYN [Concomitant]
     Indication: PAIN
     Route: 065
     Dates: start: 19960101
  8. HYDROCODONE BITARTRATE [Concomitant]
     Indication: PAIN
     Route: 065
     Dates: start: 19990301
  9. COLCHICINE [Concomitant]
     Indication: GOUT
     Route: 065
  10. BISOPROLOL [Concomitant]
     Indication: HYPERTENSION
     Route: 065
  11. ZESTRIL [Concomitant]
     Indication: HYPERTENSION
     Route: 065
     Dates: start: 19990101

REACTIONS (4)
  - ACUTE MYOCARDIAL INFARCTION [None]
  - DEPRESSION [None]
  - DIABETES MELLITUS [None]
  - DRUG ADMINISTRATION ERROR [None]
